FAERS Safety Report 22590738 (Version 1)
Quarter: 2023Q2

REPORT INFORMATION
  Report Type: Spontaneous
  Country: US (occurrence: None)
  Receive Date: 20230609
  Receipt Date: 20230609
  Transmission Date: 20230722
  Serious: Yes (Death)
  Sender: FDA-Public Use
  Company Number: None

PATIENT
  Age: 85 Year
  Sex: Female

DRUGS (11)
  1. REPATHA [Suspect]
     Active Substance: EVOLOCUMAB
     Indication: Hyperlipidaemia
     Dosage: FREQUENCY : EVERY OTHER WEEK;?
     Route: 058
     Dates: start: 20230317, end: 20230601
  2. BUMETANIDE [Concomitant]
     Active Substance: BUMETANIDE
  3. ELIQUIS [Concomitant]
     Active Substance: APIXABAN
  4. METOLAZONE [Concomitant]
     Active Substance: METOLAZONE
  5. METOPROLOL TARTRATE [Concomitant]
     Active Substance: METOPROLOL TARTRATE
  6. OMEPRAZOLE [Concomitant]
     Active Substance: OMEPRAZOLE
  7. POTASSIUM CL [Concomitant]
  8. REPAGLINIDE [Concomitant]
     Active Substance: REPAGLINIDE
  9. LANTUS SOLOSTAR [Concomitant]
     Active Substance: INSULIN GLARGINE
  10. ASPIRIN  EC LOW [Concomitant]
  11. CALTRATE 600+D [Concomitant]

REACTIONS (1)
  - Death [None]

NARRATIVE: CASE EVENT DATE: 20230604
